FAERS Safety Report 4285527-8 (Version None)
Quarter: 2004Q1

REPORT INFORMATION
  Report Type: 
  Country: None (occurrence: None)
  Receive Date: 20040203
  Receipt Date: 20040129
  Transmission Date: 20041129
  Serious: Yes (Hospitalization)
  Sender: FDA-Public Use
  Company Number: STA-AE-04-MTX-037

PATIENT
  Age: 32 Year
  Sex: Female

DRUGS (4)
  1. METHOTREXATE [Suspect]
     Indication: RHEUMATOID ARTHRITIS
     Dates: start: 20030429
  2. ENBREL [Suspect]
     Indication: RHEUMATOID ARTHRITIS
  3. PREDNISONE [Concomitant]
  4. VICODIN [Concomitant]

REACTIONS (4)
  - ANXIETY [None]
  - STEROID WITHDRAWAL SYNDROME [None]
  - TREATMENT NONCOMPLIANCE [None]
  - VIRAL UPPER RESPIRATORY TRACT INFECTION [None]
